FAERS Safety Report 7510785-3 (Version None)
Quarter: 2011Q2

REPORT INFORMATION
  Report Type: 
  Country: None (occurrence: None)
  Receive Date: 20110530
  Receipt Date: 20110520
  Transmission Date: 20111010
  Serious: Yes (Death, Hospitalization)
  Sender: FDA-Public Use
  Company Number: JP-AMGEN-JPNCT2011027710

PATIENT
  Age: 69 Year
  Sex: Male
  Weight: 64 kg

DRUGS (11)
  1. FLUOROURACIL [Concomitant]
     Indication: COLORECTAL CANCER
     Route: 040
     Dates: start: 20100921, end: 20110124
  2. FLUOROURACIL [Concomitant]
     Route: 041
     Dates: start: 20110125, end: 20110208
  3. IRINOTECAN HCL [Concomitant]
     Indication: COLORECTAL CANCER
     Route: 041
     Dates: start: 20110125, end: 20110208
  4. FLUOROURACIL [Concomitant]
     Route: 041
     Dates: start: 20100921, end: 20110124
  5. LEUCOVORIN CALCIUM [Concomitant]
     Route: 041
     Dates: start: 20110125, end: 20110208
  6. OXALIPLATIN [Concomitant]
     Indication: COLORECTAL CANCER
     Route: 041
     Dates: start: 20100921, end: 20110124
  7. DECADRON [Concomitant]
     Dosage: UNK
     Route: 042
  8. PANITUMUMAB [Suspect]
     Indication: COLORECTAL CANCER
     Dosage: 6 MG/KG, Q2WK
     Route: 041
     Dates: start: 20100921
  9. FLUOROURACIL [Concomitant]
     Route: 040
     Dates: start: 20110125, end: 20110208
  10. LEUCOVORIN CALCIUM [Concomitant]
     Indication: COLORECTAL CANCER
     Route: 041
     Dates: start: 20100921, end: 20110124
  11. KYTRIL [Concomitant]
     Dosage: UNK
     Route: 042

REACTIONS (5)
  - HYPOKALAEMIA [None]
  - PLATELET COUNT DECREASED [None]
  - DERMATITIS ACNEIFORM [None]
  - INTERSTITIAL LUNG DISEASE [None]
  - COLORECTAL CANCER [None]
